FAERS Safety Report 7286955-9 (Version None)
Quarter: 2011Q1

REPORT INFORMATION
  Report Type: 
  Country: None (occurrence: None)
  Receive Date: 20110211
  Receipt Date: 20110128
  Transmission Date: 20110831
  Serious: No
  Sender: FDA-Public Use
  Company Number: US-BIOGENIDEC-2010BI019925

PATIENT
  Age: 51 Year
  Sex: Male

DRUGS (2)
  1. AVONEX [Concomitant]
     Indication: MULTIPLE SCLEROSIS
     Route: 030
     Dates: start: 19960701
  2. TYSABRI [Suspect]
     Indication: MULTIPLE SCLEROSIS
     Route: 042
     Dates: start: 20070201, end: 20100927

REACTIONS (5)
  - GINGIVAL INJURY [None]
  - GINGIVAL BLISTER [None]
  - BLISTER [None]
  - EPIDERMOLYSIS [None]
  - FURUNCLE [None]
